FAERS Safety Report 7766185 (Version 2)
Quarter: 2014Q3

REPORT INFORMATION
  Report Type: Spontaneous
  Country: US (occurrence: US)
  Receive Date: 20110119
  Receipt Date: 20140722
  Transmission Date: 20150326
  Serious: Yes (Hospitalization, Other)
  Sender: FDA-Public Use
  Company Number: US-ROCHE-731197

PATIENT
  Age: 14 Year
  Sex: Female
  Weight: 70.8 kg

DRUGS (2)
  1. ACCUTANE [Suspect]
     Active Substance: ISOTRETINOIN
     Route: 065
     Dates: start: 19901002, end: 1991
  2. ACCUTANE [Suspect]
     Active Substance: ISOTRETINOIN
     Indication: ACNE
     Route: 065
     Dates: start: 1985, end: 1986

REACTIONS (9)
  - Deep vein thrombosis [Unknown]
  - Colitis ulcerative [Unknown]
  - Pulmonary embolism [Unknown]
  - Bronchitis [Unknown]
  - Gastrointestinal injury [Unknown]
  - Crohn^s disease [Unknown]
  - Bipolar disorder [Unknown]
  - Cervical radiculopathy [Unknown]
  - Depression [Unknown]

NARRATIVE: CASE EVENT DATE: 1990
